FAERS Safety Report 7872963-3 (Version None)
Quarter: 2011Q4

REPORT INFORMATION
  Report Type: 
  Country: None (occurrence: None)
  Receive Date: 20111030
  Receipt Date: 20110420
  Transmission Date: 20120403
  Serious: No
  Sender: FDA-Public Use
  Company Number: US-AMGEN-USASP2011020735

PATIENT
  Sex: Female

DRUGS (2)
  1. ENBREL [Suspect]
     Indication: RHEUMATOID ARTHRITIS
     Dosage: 25 MG, QWK
     Dates: start: 20040101
  2. HYDROXYCHLOROQUINE SULFATE [Concomitant]
     Dates: start: 20110401

REACTIONS (9)
  - NASOPHARYNGITIS [None]
  - BRONCHITIS [None]
  - LOWER RESPIRATORY TRACT INFECTION [None]
  - IMMUNE SYSTEM DISORDER [None]
  - VIRAL INFECTION [None]
  - INJECTION SITE ERYTHEMA [None]
  - ABDOMINAL DISCOMFORT [None]
  - INJECTION SITE PRURITUS [None]
  - UPPER RESPIRATORY TRACT INFECTION [None]
